FAERS Safety Report 18814203 (Version 1)
Quarter: 2021Q1

REPORT INFORMATION
  Report Type: Spontaneous
  Country: DE (occurrence: DE)
  Receive Date: 20210201
  Receipt Date: 20210201
  Transmission Date: 20210419
  Serious: Yes (Hospitalization, Other)
  Sender: FDA-Public Use
  Company Number: DE-TEVA-2021-DE-1873687

PATIENT
  Age: 81 Year
  Sex: Female
  Weight: 71 kg

DRUGS (8)
  1. CANDESARTAN. [Suspect]
     Active Substance: CANDESARTAN
     Dosage: 1 DOSAGE FORMS DAILY; 32 MG, 0.5?0?0.5?0
  2. BISOPROLOL [Concomitant]
     Active Substance: BISOPROLOL
     Dosage: 2.5 MILLIGRAM DAILY; 1.25 MG, 1?0?1?0
  3. ZOPICLON [Concomitant]
     Active Substance: ZOPICLONE
     Dosage: .5 DOSAGE FORMS DAILY; 7.5 MG, 0?0?0?0.5
  4. TORASEMID [Concomitant]
     Active Substance: TORSEMIDE
     Dosage: 10 MG, 1?0.5?0?0
  5. CISPLATIN. [Suspect]
     Active Substance: CISPLATIN
     Dosage: LAST 21?OCT?2020
     Route: 065
  6. GEMCITABINE. [Suspect]
     Active Substance: GEMCITABINE
     Dosage: LAST 21?OCT?2020
     Route: 065
  7. TRAMADOL. [Concomitant]
     Active Substance: TRAMADOL
     Dosage: 400 MILLIGRAM DAILY; 200 MG, 0?1?0?1
  8. HYGROTON [Suspect]
     Active Substance: CHLORTHALIDONE
     Dosage: 25 MILLIGRAM DAILY; 1?0?0?0

REACTIONS (7)
  - Condition aggravated [Unknown]
  - Erythema [Unknown]
  - Pancytopenia [Unknown]
  - Oedema peripheral [Unknown]
  - General physical health deterioration [Unknown]
  - Peripheral swelling [Unknown]
  - Strabismus [Unknown]
